FAERS Safety Report 25606548 (Version 1)
Quarter: 2025Q3

REPORT INFORMATION
  Report Type: Spontaneous
  Country: US (occurrence: US)
  Receive Date: 20250725
  Receipt Date: 20250725
  Transmission Date: 20251021
  Serious: Yes (Other)
  Sender: AMGEN
  Company Number: US-AMGEN-USASP2025139035

PATIENT

DRUGS (2)
  1. ROMIPLOSTIM [Suspect]
     Active Substance: ROMIPLOSTIM
     Indication: Immune thrombocytopenia
     Route: 065
  2. RITUXIMAB [Suspect]
     Active Substance: RITUXIMAB
     Indication: Immune thrombocytopenia
     Route: 065

REACTIONS (15)
  - Adverse event [Unknown]
  - Haemorrhage [Unknown]
  - Petechiae [Unknown]
  - Epistaxis [Unknown]
  - Ecchymosis [Unknown]
  - Headache [Unknown]
  - Cough [Unknown]
  - Pyrexia [Unknown]
  - Oropharyngeal pain [Unknown]
  - Upper respiratory tract infection [Unknown]
  - Haematoma [Unknown]
  - Vomiting [Unknown]
  - Leukocytosis [Unknown]
  - Contusion [Unknown]
  - Therapeutic product effect incomplete [Unknown]
